FAERS Safety Report 21378927 (Version 1)
Quarter: 2022Q3

REPORT INFORMATION
  Report Type: Spontaneous
  Country: DE (occurrence: DE)
  Receive Date: 20220927
  Receipt Date: 20220927
  Transmission Date: 20221027
  Serious: Yes (Hospitalization, Other)
  Sender: FDA-Public Use
  Company Number: DE-ADRED-07860-01

PATIENT
  Age: 84 Year
  Sex: Male
  Weight: 74 kg

DRUGS (6)
  1. DOCETAXEL [Suspect]
     Active Substance: DOCETAXEL
     Dosage: SCHEME
  2. SIMVASTATIN [Concomitant]
     Active Substance: SIMVASTATIN
     Dosage: 40 MG, 0-0-1-0
  3. APIXABAN [Concomitant]
     Active Substance: APIXABAN
     Dosage: 5 MG, 1-0-1-0
  4. SACUBITRIL\VALSARTAN [Concomitant]
     Active Substance: SACUBITRIL\VALSARTAN
     Dosage: 24|26 MG, 1-0-1-0
  5. BISOPROLOL [Concomitant]
     Active Substance: BISOPROLOL
     Dosage: 5 MG, 1-0-0-0
  6. SPIRONOLACTONE [Concomitant]
     Active Substance: SPIRONOLACTONE
     Dosage: 25 MG, 0.5-0-0-0

REACTIONS (9)
  - Condition aggravated [Unknown]
  - General physical health deterioration [Unknown]
  - Systemic infection [Unknown]
  - Oedema peripheral [Unknown]
  - Weight decreased [Unknown]
  - Arrhythmia [Unknown]
  - Anaemia [Unknown]
  - Dyspnoea [Unknown]
  - Nausea [Unknown]
